FAERS Safety Report 7790004 (Version 3)
Quarter: 2013Q1

REPORT INFORMATION
  Report Type: Report from Study
  Country: US (occurrence: US)
  Receive Date: 20110130
  Receipt Date: 20130129
  Transmission Date: 20140127
  Serious: No
  Sender: FDA-Public Use
  Company Number: US-ABBOTT-10P-163-0686030-00

PATIENT
  Age: 38 None
  Sex: Female
  Weight: 119.86 kg

DRUGS (11)
  1. HUMIRA 40 MG/0.8 ML PEN [Suspect]
     Indication: CROHN^S DISEASE
     Route: 058
     Dates: start: 20100701
  2. HUMIRA 40 MG/0.8 ML PEN [Suspect]
  3. LISINOPRIL [Concomitant]
     Indication: HYPERTENSION
     Route: 048
  4. TOPAMAX [Concomitant]
     Indication: MIGRAINE
     Route: 048
     Dates: start: 2007
  5. ZANTAC [Concomitant]
     Indication: GASTROOESOPHAGEAL REFLUX DISEASE
     Route: 048
  6. MULTIVITAMINS WITH IRON [Concomitant]
     Indication: PRODUCT USED FOR UNKNOWN INDICATION
  7. PRENATAL VITAMINS [Concomitant]
     Indication: VITAMIN SUPPLEMENTATION
     Dosage: DAILY
  8. METHOCARBINOL [Concomitant]
     Indication: MUSCLE SPASMS
     Dosage: QID
  9. VICODIN [Concomitant]
     Indication: PAIN
     Dosage: 5/500MG EVERY 6 PRN
  10. NITROFURANTOIN MONOHYDRATE/MACROCRYSTALS [Concomitant]
     Indication: CYSTITIS
     Dosage: DAILY
  11. GABAPENTIN [Concomitant]
     Indication: PRODUCT USED FOR UNKNOWN INDICATION
     Dosage: TID

REACTIONS (22)
  - Injection site pain [Not Recovered/Not Resolved]
  - Rash [Not Recovered/Not Resolved]
  - Photosensitivity reaction [Not Recovered/Not Resolved]
  - Injection site nodule [Unknown]
  - Injection site extravasation [Recovered/Resolved]
  - Device malfunction [Recovered/Resolved]
  - Burning sensation [Recovered/Resolved]
  - Rash [Not Recovered/Not Resolved]
  - Dysgeusia [Not Recovered/Not Resolved]
  - Paraesthesia [Recovered/Resolved]
  - Vomiting [Recovered/Resolved]
  - Gastrointestinal pain [Recovered/Resolved]
  - Diarrhoea [Recovered/Resolved]
  - Bone pain [Recovered/Resolved]
  - Myalgia [Not Recovered/Not Resolved]
  - Skin lesion [Not Recovered/Not Resolved]
  - Rash generalised [Not Recovered/Not Resolved]
  - Rash [Not Recovered/Not Resolved]
  - Rash pruritic [Not Recovered/Not Resolved]
  - Rash macular [Not Recovered/Not Resolved]
  - Excoriation [Not Recovered/Not Resolved]
  - Fibromyalgia [Not Recovered/Not Resolved]
